FAERS Safety Report 8784605 (Version 2)
Quarter: 2012Q4

REPORT INFORMATION
  Report Type: Spontaneous
  Country: US (occurrence: None)
  Receive Date: 20120831
  Receipt Date: 20120914
  Transmission Date: 20130627
  Serious: Yes (Other)
  Sender: FDA-Public Use
  Company Number: ENTC2012-0391

PATIENT
  Age: 81 Year
  Sex: Male

DRUGS (1)
  1. STALEVO [Suspect]

REACTIONS (2)
  - Feeling abnormal [None]
  - Musculoskeletal stiffness [None]
